FAERS Safety Report 5563050-8 (Version None)
Quarter: 2007Q4

REPORT INFORMATION
  Report Type: 
  Country: None (occurrence: None)
  Receive Date: 20071217
  Receipt Date: 20071212
  Transmission Date: 20080405
  Serious: Yes (Other)
  Sender: FDA-Public Use
  Company Number: A0686952A

PATIENT
  Age: 70 Year
  Sex: Male
  Weight: 85 kg

DRUGS (11)
  1. COREG [Suspect]
     Indication: ATRIAL FIBRILLATION
     Dosage: 3.125MG TWICE PER DAY
     Route: 048
     Dates: start: 20070912
  2. AMIODARONE HCL [Concomitant]
     Indication: ARRHYTHMIA
     Dosage: 200MG PER DAY
     Route: 048
  3. WARFARIN SODIUM [Concomitant]
     Dosage: 2MG PER DAY
     Route: 048
  4. SYNTHROID [Concomitant]
     Indication: HYPOTHYROIDISM
     Dosage: .112MG PER DAY
     Route: 048
  5. NOVOSEMIDE [Concomitant]
     Dosage: 40MG PER DAY
     Route: 048
  6. UNSPECIFIED MEDICATION [Concomitant]
     Dosage: 20MG PER DAY
  7. EZETROL [Concomitant]
     Dosage: 10MG PER DAY
     Route: 048
  8. CRESTOR [Concomitant]
     Dosage: 40MG PER DAY
     Route: 048
  9. ASAPHEN [Concomitant]
     Dosage: 20MG PER DAY
     Route: 048
  10. DIGOXIN [Concomitant]
     Indication: ARRHYTHMIA
     Dosage: .0625MG PER DAY
     Route: 048
  11. ACCUPRIL [Concomitant]
     Indication: HYPERTENSION
     Dosage: 20MG TWICE PER DAY
     Route: 048

REACTIONS (4)
  - PHOTOPSIA [None]
  - PHOTOSENSITIVITY REACTION [None]
  - RETINAL HAEMORRHAGE [None]
  - VISUAL DISTURBANCE [None]
